FAERS Safety Report 6327858-3 (Version None)
Quarter: 2009Q3

REPORT INFORMATION
  Report Type: 
  Country: None (occurrence: None)
  Receive Date: 20090824
  Receipt Date: 20090807
  Transmission Date: 20100115
  Serious: Yes (Hospitalization)
  Sender: FDA-Public Use
  Company Number: 2009AL005259

PATIENT
  Age: 65 Year
  Sex: Male

DRUGS (1)
  1. NAPROXEN [Suspect]
     Indication: CHEST PAIN
     Dosage: 500 MG; BID; PO
     Route: 048
     Dates: start: 20090701, end: 20090716

REACTIONS (2)
  - GASTROINTESTINAL HAEMORRHAGE [None]
  - HAEMOGLOBIN DECREASED [None]
